FAERS Safety Report 6784660-6 (Version None)
Quarter: 2010Q2

REPORT INFORMATION
  Report Type: 
  Country: None (occurrence: None)
  Receive Date: 20100622
  Receipt Date: 20100614
  Transmission Date: 20101027
  Serious: Yes (Other)
  Sender: FDA-Public Use
  Company Number: B0661696A

PATIENT
  Age: 80 Year
  Sex: Male

DRUGS (1)
  1. SERETIDE [Suspect]
     Indication: ASTHMA
     Route: 055

REACTIONS (1)
  - PNEUMONIA [None]
